FAERS Safety Report 7167162-7 (Version None)
Quarter: 2010Q4

REPORT INFORMATION
  Report Type: 
  Country: None (occurrence: None)
  Receive Date: 20101216
  Receipt Date: 20101210
  Transmission Date: 20110411
  Serious: Yes (Other)
  Sender: FDA-Public Use
  Company Number: US-PFIZER INC-2010169436

PATIENT
  Age: 78 Year
  Sex: Male
  Weight: 63.492 kg

DRUGS (7)
  1. PROTONIX [Suspect]
     Indication: BARRETT'S OESOPHAGUS
     Dosage: 40 MG, 1X/DAY
     Route: 048
  2. PANTOPRAZOLE SODIUM [Suspect]
     Indication: BARRETT'S OESOPHAGUS
     Dosage: 40 MG, 1X/DAY
     Route: 048
  3. LIPITOR [Concomitant]
     Indication: BLOOD CHOLESTEROL ABNORMAL
     Dosage: 20 MG, 1X/DAY
     Route: 048
  4. METOPROLOL [Concomitant]
     Indication: BLOOD PRESSURE ABNORMAL
     Dosage: 100 MG, 2X/DAY
     Route: 048
  5. LISINOPRIL [Concomitant]
     Indication: BLOOD PRESSURE ABNORMAL
     Dosage: 20 MG, 2X/DAY
     Route: 048
  6. AMLODIPINE [Concomitant]
     Indication: BLOOD PRESSURE ABNORMAL
     Dosage: 5 MG, 1X/DAY
     Route: 048
  7. ASPIRIN [Concomitant]
     Dosage: 81 MG, UNK
     Dates: start: 19920101

REACTIONS (4)
  - DRUG INEFFECTIVE [None]
  - NAUSEA [None]
  - PANCREATECTOMY [None]
  - SPLENECTOMY [None]
